FAERS Safety Report 4429451-6 (Version None)
Quarter: 2004Q3

REPORT INFORMATION
  Report Type: 
  Country: None (occurrence: None)
  Receive Date: 20040818
  Receipt Date: 20040818
  Transmission Date: 20050211
  Serious: No
  Sender: FDA-Public Use
  Company Number: None

PATIENT
  Sex: Female
  Weight: 102.9665 kg

DRUGS (15)
  1. PRAVASTATIN [Suspect]
     Indication: HYPERCHOLESTEROLAEMIA
     Dosage: 20 MG PO QHS
     Route: 048
     Dates: start: 20040415, end: 20040722
  2. SYNTHROID [Concomitant]
  3. CYTOMEL [Concomitant]
  4. GUAIFED PSE [Concomitant]
  5. ALPRAZOLAM [Concomitant]
  6. NASONEX [Concomitant]
  7. SEROQUEL [Concomitant]
  8. AMMONIUM LACTATE LOTION [Concomitant]
  9. LACRIMAL PLUGS [Concomitant]
  10. OMEGABRITE [Concomitant]
  11. PHYTOPHARMICA - PROBIOTIC PEARLS, L ACIDOPHILUS AND B. LONGUM [Concomitant]
  12. VIACTIV CALCIUM W/D + K [Concomitant]
  13. MULTIVITAMIN [Concomitant]
  14. REFRESH TEARS, CELLUVISC [Concomitant]
  15. TINACTIN POWDER [Concomitant]

REACTIONS (12)
  - ALANINE AMINOTRANSFERASE INCREASED [None]
  - ARTHRALGIA [None]
  - ASPARTATE AMINOTRANSFERASE INCREASED [None]
  - ASTHENIA [None]
  - BLOOD CREATINE PHOSPHOKINASE INCREASED [None]
  - DIFFICULTY IN WALKING [None]
  - DYSSTASIA [None]
  - GRIP STRENGTH DECREASED [None]
  - MOVEMENT DISORDER [None]
  - MYALGIA [None]
  - OEDEMA PERIPHERAL [None]
  - WEIGHT DECREASED [None]
